FAERS Safety Report 4513409-2 (Version None)
Quarter: 2004Q4

REPORT INFORMATION
  Report Type: 
  Country: None (occurrence: None)
  Receive Date: 20041130
  Receipt Date: 20040914
  Transmission Date: 20050328
  Serious: Yes (Other)
  Sender: FDA-Public Use
  Company Number: US-BRISTOL-MYERS SQUIBB COMPANY-12708244

PATIENT
  Age: 60 Year
  Sex: Male
  Weight: 61 kg

DRUGS (8)
  1. ERBITUX [Suspect]
     Indication: COLORECTAL CANCER METASTATIC
     Dosage: 400 MG/M2 ORDERED (700 MG).  INFUSION INTERRUPTED X 2 HOURS, THEN RESTARTED AT A SLOWER RATE.
     Route: 042
  2. BENADRYL [Concomitant]
     Indication: PREMEDICATION
     Route: 042
  3. DECADRON [Concomitant]
     Indication: PREMEDICATION
     Route: 042
  4. ALBUTEROL [Concomitant]
  5. OXYCONTIN [Concomitant]
  6. PHENERGAN [Concomitant]
  7. ROBITUSSIN [Concomitant]
  8. TORECAN [Concomitant]

REACTIONS (2)
  - DYSPNOEA [None]
  - PRURITUS [None]
